FAERS Safety Report 7739553-4 (Version None)
Quarter: 2011Q3

REPORT INFORMATION
  Report Type: 
  Country: None (occurrence: None)
  Receive Date: 20110909
  Receipt Date: 20110830
  Transmission Date: 20111222
  Serious: Yes (Hospitalization)
  Sender: FDA-Public Use
  Company Number: FR-KINGPHARMUSA00001-K201101018

PATIENT
  Sex: Male

DRUGS (11)
  1. PLAVIX [Concomitant]
     Dosage: 75 MG, QD
  2. MOVIPREP [Concomitant]
     Dosage: 3 DF, QD (AS NEEDED)
  3. VALSARTAN  AND HYDROCHLOROTHIAZIDE [Suspect]
     Dosage: 1 DF, QD
     Route: 048
     Dates: start: 20110201, end: 20110719
  4. ASPIRIN [Concomitant]
     Dosage: 160 MG, QD
  5. ALTACE [Suspect]
     Dosage: 2.5 MG, BID
     Route: 048
     Dates: end: 20110630
  6. AMLODIPINE BESYLATE [Suspect]
     Dosage: 5 MG, BID
     Route: 048
     Dates: end: 20110630
  7. NITROGLYCERIN [Suspect]
     Dosage: 5 MG, QD
     Route: 062
     Dates: end: 20110702
  8. ATARAX [Concomitant]
     Dosage: 25 MG, BID (AS NEEDED)
  9. NEXIUM [Concomitant]
     Dosage: 1 DF, QD
  10. PRAVASTATIN [Suspect]
     Dosage: 40 MG, QD
     Route: 048
     Dates: end: 20110702
  11. METOPROLOL TARTRATE [Concomitant]
     Dosage: 0.25 MG, BID
     Route: 048

REACTIONS (9)
  - ECZEMA [None]
  - ACUTE PULMONARY OEDEMA [None]
  - STAPHYLOCOCCAL BACTERAEMIA [None]
  - ENDOCARDITIS [None]
  - CULTURE URINE POSITIVE [None]
  - PRURITUS [None]
  - DRY SKIN [None]
  - SKIN LESION [None]
  - SKIN PLAQUE [None]
